FAERS Safety Report 15742983 (Version 2)
Quarter: 2018Q4

REPORT INFORMATION
  Report Type: Spontaneous
  Country: US (occurrence: US)
  Receive Date: 20181220
  Receipt Date: 20181228
  Transmission Date: 20190205
  Serious: Yes (Other)
  Sender: FDA-Public Use
  Company Number: US-TEVA-2018-US-989214

PATIENT
  Age: 13 Year
  Sex: Female

DRUGS (8)
  1. OSELTAMIVIR [Suspect]
     Active Substance: OSELTAMIVIR
     Indication: INFLUENZA
  2. IMMUNE GLOBULIN NOS [Suspect]
     Active Substance: IMMUNE GLOBULIN NOS
     Indication: INFLUENZA
     Dosage: 1 DOSE OF 2 G/KG ON ECMO DAY 2?IVIG?IMMUNE GLOBULIN INTRAVENOUS
     Route: 042
  3. OSELTAMIVIR [Suspect]
     Active Substance: OSELTAMIVIR
     Indication: VIRAL MYOCARDITIS
     Route: 065
  4. METHYLPREDNISOLONE. [Suspect]
     Active Substance: METHYLPREDNISOLONE
     Indication: VIRAL MYOCARDITIS
  5. METHYLPREDNISOLONE. [Suspect]
     Active Substance: METHYLPREDNISOLONE
     Indication: INFLUENZA
     Dosage: 1000 MILLIGRAM DAILY; 6 DOSES; FOLLOWED BY A TAPER INITIATED AT 1.5 MG/KG PER DAY IN DIVIDED DOSES T
     Route: 042
  6. ANTITHYMOCYTE GLOBULIN [Suspect]
     Active Substance: THYMOCYTE IMMUNE GLOBULIN NOS
     Indication: INFLUENZA
  7. ANTITHYMOCYTE GLOBULIN [Suspect]
     Active Substance: THYMOCYTE IMMUNE GLOBULIN NOS
     Indication: VIRAL MYOCARDITIS
     Dosage: PER DOSE ON DAY 5
     Route: 065
  8. IMMUNE GLOBULIN NOS [Suspect]
     Active Substance: IMMUNE GLOBULIN NOS
     Indication: VIRAL MYOCARDITIS

REACTIONS (3)
  - Lymphopenia [Recovering/Resolving]
  - Thrombocytopenia [Unknown]
  - Drug ineffective [Unknown]
